FAERS Safety Report 8616167 (Version 3)
Quarter: 2012Q4

REPORT INFORMATION
  Report Type: Report from Study
  Country: DE (occurrence: DE)
  Receive Date: 20120614
  Receipt Date: 20120918
  Transmission Date: 20130627
  Serious: Yes (Hospitalization)
  Sender: FDA-Public Use
  Company Number: DE-ABBOTT-12P-062-0942605-05

PATIENT
  Age: 51 None
  Sex: Male
  Weight: 72 kg

DRUGS (14)
  1. HUMIRA [Suspect]
     Indication: CROHN^S DISEASE
     Route: 058
     Dates: start: 20090317
  2. HUMIRA [Suspect]
     Dosage: Baseline
     Route: 058
     Dates: start: 20090427, end: 20090427
  3. HUMIRA [Suspect]
     Dosage: Week 2
     Route: 058
  4. HUMIRA [Suspect]
     Route: 058
     Dates: end: 20120228
  5. HUMIRA [Suspect]
     Route: 058
     Dates: start: 20120515
  6. IMUREK [Concomitant]
     Indication: CROHN^S DISEASE
     Dates: start: 19980401, end: 20111120
  7. IMUREK [Concomitant]
     Dates: start: 20111121
  8. PANTOZOL [Concomitant]
     Indication: GASTRIC DISORDER
     Dates: start: 20050101
  9. PANTOZOL [Concomitant]
     Indication: PROPHYLAXIS
  10. MAGNESIUM VERLA [Concomitant]
     Indication: MINERAL SUPPLEMENTATION
     Dates: start: 20090301
  11. AMITRIPTYLIN [Concomitant]
     Indication: ANALGESIC THERAPY
     Dates: start: 20100419
  12. NOVALGIN [Concomitant]
     Indication: POLYNEUROPATHY
     Dates: start: 200909
  13. NOVALGIN [Concomitant]
     Indication: PAIN
  14. TAMSULOSIN [Concomitant]
     Indication: BENIGN PROSTATIC HYPERPLASIA
     Dates: start: 200911

REACTIONS (1)
  - Rash [Not Recovered/Not Resolved]
